FAERS Safety Report 7775090-9 (Version None)
Quarter: 2011Q3

REPORT INFORMATION
  Report Type: 
  Country: None (occurrence: None)
  Receive Date: 20110923
  Receipt Date: 20110908
  Transmission Date: 20111222
  Serious: Yes (Other)
  Sender: FDA-Public Use
  Company Number: CH-WATSON-2011-14906

PATIENT
  Sex: Male

DRUGS (2)
  1. SIMVASTATIN [Suspect]
     Indication: HYPERLIPIDAEMIA
     Dosage: UNK
  2. ACTEMRA [Suspect]
     Indication: RHEUMATOID ARTHRITIS

REACTIONS (3)
  - DRUG INTERACTION [None]
  - NEUTROPENIA [None]
  - RESPIRATORY TRACT INFECTION [None]
